FAERS Safety Report 6018761-7 (Version None)
Quarter: 2008Q4

REPORT INFORMATION
  Report Type: 
  Country: None (occurrence: None)
  Receive Date: 20081222
  Receipt Date: 20081215
  Transmission Date: 20090506
  Serious: Yes (Hospitalization)
  Sender: FDA-Public Use
  Company Number: 038337

PATIENT
  Age: 24 Year
  Sex: Female
  Weight: 50.8 kg

DRUGS (4)
  1. PLAN B [Suspect]
     Indication: CONTRACEPTION
     Dosage: 1 TABLET,   ORAL;  1 TABLET, QL2HR, ORAL
     Route: 048
     Dates: start: 20070701, end: 20070701
  2. PLAN B [Suspect]
     Indication: CONTRACEPTION
     Dosage: 1 TABLET,   ORAL;  1 TABLET, QL2HR, ORAL
     Route: 048
     Dates: start: 20070701, end: 20070701
  3. PLAN B [Suspect]
     Indication: CONTRACEPTION
     Dosage: 1 TABLET,   ORAL;  1 TABLET, QL2HR, ORAL
     Route: 048
     Dates: start: 20081130, end: 20081201
  4. PLAN B [Suspect]
     Indication: CONTRACEPTION
     Dosage: 1 TABLET,   ORAL;  1 TABLET, QL2HR, ORAL
     Route: 048
     Dates: start: 20081215

REACTIONS (5)
  - ABDOMINAL PAIN [None]
  - DRUG EXPOSURE DURING PREGNANCY [None]
  - MENSTRUATION IRREGULAR [None]
  - UNINTENDED PREGNANCY [None]
  - UTERINE HAEMORRHAGE [None]
